FAERS Safety Report 7587134-8 (Version None)
Quarter: 2011Q3

REPORT INFORMATION
  Report Type: 
  Country: None (occurrence: None)
  Receive Date: 20110701
  Receipt Date: 20110622
  Transmission Date: 20111222
  Serious: Yes (Death, Life-Threatening)
  Sender: FDA-Public Use
  Company Number: JP-GENZYME-THYM-1002291

PATIENT

DRUGS (15)
  1. ISOSORBIDE DINITRATE [Concomitant]
     Indication: ANGINA PECTORIS
     Dosage: UNK
     Route: 065
     Dates: start: 20101004, end: 20110111
  2. RABEPRAZOLE SODIUM [Concomitant]
     Indication: PROPHYLAXIS AGAINST GASTROINTESTINAL ULCER
     Dosage: UNK
     Dates: start: 20101004, end: 20110125
  3. ENTECAVIR [Concomitant]
     Indication: ANTIVIRAL PROPHYLAXIS
     Dosage: UNK
     Dates: start: 20101004, end: 20110129
  4. RED BLOOD CELLS, CONCENTRATED [Concomitant]
     Indication: APLASTIC ANAEMIA
     Dosage: UNK
     Dates: start: 20101021, end: 20110205
  5. THYMOGLOBULIN [Suspect]
     Indication: APLASTIC ANAEMIA
     Dosage: 150 MG, QD
     Route: 042
     Dates: start: 20101004, end: 20101008
  6. ITRACONAZOLE [Concomitant]
     Indication: ANTIFUNGAL PROPHYLAXIS
     Dosage: UNK
     Dates: start: 20101004, end: 20101118
  7. METHYLPREDNISOLONE SODIUM SUCCINATE [Concomitant]
     Indication: PREMEDICATION
     Dosage: UNK
     Dates: start: 20101004, end: 20101013
  8. CYCLOSPORINE [Concomitant]
     Indication: APLASTIC ANAEMIA
     Dosage: 60 MG, QD
     Dates: start: 20101004, end: 20101223
  9. ACETAMINOPHEN [Concomitant]
     Indication: PREMEDICATION
     Dosage: UNK
     Dates: start: 20101004, end: 20101008
  10. PLATELETS [Concomitant]
     Indication: APLASTIC ANAEMIA
     Dosage: UNK
     Dates: start: 20101008, end: 20110207
  11. MOSAPRIDE CITRATE [Concomitant]
     Indication: PROPHYLAXIS AGAINST GASTROINTESTINAL ULCER
     Dosage: UNK
     Dates: start: 20101004, end: 20101201
  12. DEXCHLORPHENIRAMINE MALEATE [Concomitant]
     Indication: PREMEDICATION
     Dosage: UNK
     Dates: start: 20101004, end: 20101008
  13. PREDNISOLONE [Concomitant]
     Indication: PREMEDICATION
     Dosage: UNK
     Dates: start: 20101014, end: 20101103
  14. PENTAMIDINE ISETHIONATE [Concomitant]
     Indication: PROPHYLAXIS
     Dosage: UNK
     Dates: start: 20101108, end: 20110209
  15. LENOGRASTIM [Concomitant]
     Indication: APLASTIC ANAEMIA
     Dosage: UNK
     Dates: start: 20101008, end: 20110209

REACTIONS (15)
  - HYPERGLYCAEMIA [None]
  - MULTI-ORGAN FAILURE [None]
  - HYPERCALCAEMIA [None]
  - HERPES ZOSTER [None]
  - INSOMNIA [None]
  - DISSEMINATED TUBERCULOSIS [None]
  - CYTOMEGALOVIRUS VIRAEMIA [None]
  - FUNGAEMIA [None]
  - DEPRESSION [None]
  - HYPOPROTEINAEMIA [None]
  - CARDIAC FAILURE [None]
  - CELLULITIS [None]
  - PNEUMONIA [None]
  - ANXIETY DISORDER [None]
  - LIVER DISORDER [None]
